FAERS Safety Report 4703720-4 (Version None)
Quarter: 2005Q2

REPORT INFORMATION
  Report Type: 
  Country: None (occurrence: None)
  Receive Date: 20050628
  Receipt Date: 20050615
  Transmission Date: 20051028
  Serious: Yes (Other)
  Sender: FDA-Public Use
  Company Number: 2005083706

PATIENT
  Age: 55 Year
  Sex: Male

DRUGS (1)
  1. VIAGRA [Suspect]
     Indication: ILL-DEFINED DISORDER

REACTIONS (7)
  - AMAUROSIS [None]
  - BLINDNESS UNILATERAL [None]
  - HYPERTENSION [None]
  - OPTIC ISCHAEMIC NEUROPATHY [None]
  - RETINAL ARTERY OCCLUSION [None]
  - RETINAL EXUDATES [None]
  - RETINAL VASCULAR DISORDER [None]
